FAERS Safety Report 11749321 (Version 1)
Quarter: 2015Q4

REPORT INFORMATION
  Report Type: Spontaneous
  Country: FR (occurrence: FR)
  Receive Date: 20151118
  Receipt Date: 20151118
  Transmission Date: 20160304
  Serious: Yes (Disabling)
  Sender: FDA-Public Use
  Company Number: PHHY2015FR148156

PATIENT
  Age: 55 Year
  Sex: Female

DRUGS (6)
  1. MITOMYCINE [Suspect]
     Active Substance: MITOMYCIN
     Dosage: 17 MG, UNK
     Route: 042
     Dates: start: 20150203
  2. FLUOROURACILE [Suspect]
     Active Substance: FLUOROURACIL
     Indication: RECTAL NEOPLASM
     Dosage: 4400 MG, UNK
     Route: 042
     Dates: start: 20150106, end: 20150106
  3. ZOMETA [Suspect]
     Active Substance: ZOLEDRONIC ACID
     Indication: OSTEOPOROSIS
     Route: 042
     Dates: start: 201504
  4. MITOMYCINE [Suspect]
     Active Substance: MITOMYCIN
     Dosage: 14 MG, UNK
     Route: 042
     Dates: start: 20150224, end: 20150224
  5. ZOMETA [Suspect]
     Active Substance: ZOLEDRONIC ACID
     Indication: OFF LABEL USE
  6. MITOMYCINE [Suspect]
     Active Substance: MITOMYCIN
     Indication: RECTAL NEOPLASM
     Dosage: 14 MG, UNK
     Route: 042
     Dates: start: 20150106

REACTIONS (5)
  - Pleural effusion [Not Recovered/Not Resolved]
  - General physical health deterioration [Not Recovered/Not Resolved]
  - Pulmonary veno-occlusive disease [Not Recovered/Not Resolved]
  - Dyspnoea [Not Recovered/Not Resolved]
  - Pulmonary arterial hypertension [Not Recovered/Not Resolved]

NARRATIVE: CASE EVENT DATE: 201506
